FAERS Safety Report 22518971 (Version 1)
Quarter: 2023Q2

REPORT INFORMATION
  Report Type: Other
  Country: US (occurrence: US)
  Receive Date: 20230605
  Receipt Date: 20230605
  Transmission Date: 20230721
  Serious: Yes (Hospitalization, Other)
  Sender: FDA-Public Use
  Company Number: US-Bion-011657

PATIENT
  Age: 25 Year
  Sex: Female

DRUGS (1)
  1. LOPERAMIDE HYDROCHLORIDE [Suspect]
     Active Substance: LOPERAMIDE HYDROCHLORIDE
     Indication: Diarrhoea
     Dosage: 100-150 TABLETS

REACTIONS (5)
  - Toxicity to various agents [Recovered/Resolved with Sequelae]
  - Intentional product misuse [Unknown]
  - Overdose [Unknown]
  - Cardiogenic shock [Recovered/Resolved with Sequelae]
  - Ventricular arrhythmia [Recovered/Resolved with Sequelae]
